FAERS Safety Report 7573930-X (Version None)
Quarter: 2011Q2

REPORT INFORMATION
  Report Type: 
  Country: None (occurrence: None)
  Receive Date: 20110627
  Receipt Date: 20110614
  Transmission Date: 20111010
  Serious: Yes (Other)
  Sender: FDA-Public Use
  Company Number: CA-JNJFOC-20100602507

PATIENT
  Sex: Female
  Weight: 68 kg

DRUGS (4)
  1. REMICADE [Suspect]
     Indication: CROHN'S DISEASE
     Route: 042
  2. CALCIUM CARBONATE [Concomitant]
  3. VITAMIN D [Concomitant]
  4. MATERNA [Concomitant]

REACTIONS (2)
  - INTRA-UTERINE DEATH [None]
  - DRUG EXPOSURE DURING PREGNANCY [None]
